FAERS Safety Report 4333378-8 (Version None)
Quarter: 2004Q1

REPORT INFORMATION
  Report Type: 
  Country: None (occurrence: None)
  Receive Date: 20040330
  Receipt Date: 20040322
  Transmission Date: 20041129
  Serious: Yes (Death)
  Sender: FDA-Public Use
  Company Number: 200416442BWH

PATIENT
  Sex: Male

DRUGS (4)
  1. LEVITRA [Suspect]
     Dosage: ORAL
     Route: 048
  2. MAXZIDE [Concomitant]
  3. DIGOXIN [Concomitant]
  4. XANAX [Concomitant]

REACTIONS (1)
  - DEATH [None]
